FAERS Safety Report 7398883-9 (Version None)
Quarter: 2011Q2

REPORT INFORMATION
  Report Type: 
  Country: None (occurrence: None)
  Receive Date: 20110407
  Receipt Date: 20110315
  Transmission Date: 20111010
  Serious: No
  Sender: FDA-Public Use
  Company Number: US-B.I. PHARMACEUTICALS,INC./RIDGEFIELD-2011-BP-02554BP

PATIENT
  Sex: Female

DRUGS (12)
  1. SPIRIVA [Suspect]
     Indication: CHRONIC OBSTRUCTIVE PULMONARY DISEASE
     Dosage: 18 MCG
     Route: 055
     Dates: start: 20101130
  2. FISH OIL [Concomitant]
  3. FUROSEMIDE [Concomitant]
     Dosage: 20 MG
  4. BENAZEPRIL HYDROCHLORIDE [Concomitant]
     Dosage: 40 MG
  5. WARFARIN SODIUM [Concomitant]
  6. DALERA [Concomitant]
  7. HYDRALAZINE [Concomitant]
     Dosage: 50 MG
  8. NEXIUM [Concomitant]
     Dosage: 40 MG
  9. MULTI-VITAMINS [Concomitant]
  10. ACETAMINOPHEN [Concomitant]
  11. FOLIC ACID [Concomitant]
     Dosage: 1 MG
  12. VENTOLIN HFA [Concomitant]

REACTIONS (1)
  - DRUG INEFFECTIVE [None]
